FAERS Safety Report 18383832 (Version 1)
Quarter: 2020Q4

REPORT INFORMATION
  Report Type: Spontaneous
  Country: US (occurrence: US)
  Receive Date: 20201014
  Receipt Date: 20201014
  Transmission Date: 20210114
  Serious: No
  Sender: FDA-Public Use
  Company Number: US-TEVA-2020-US-1838281

PATIENT
  Sex: Female

DRUGS (9)
  1. COPAXONE [Suspect]
     Active Substance: GLATIRAMER ACETATE
     Dosage: FORM STRENGTH AND DOSE: UNKNOWN.
     Route: 065
  2. GENERIC DIAZEPAM [Concomitant]
  3. BIOTIN [Concomitant]
     Active Substance: BIOTIN
  4. MULTIVITAMIN [Concomitant]
     Active Substance: VITAMINS
  5. LORATADINE. [Concomitant]
     Active Substance: LORATADINE
  6. AMANTADINE. [Concomitant]
     Active Substance: AMANTADINE HYDROCHLORIDE
  7. OXYBUTYNIN CHLORIDE ER [Concomitant]
     Active Substance: OXYBUTYNIN CHLORIDE
  8. ESCITALOPRAM OXALATE. [Concomitant]
     Active Substance: ESCITALOPRAM OXALATE
  9. TIZANIDINE. [Concomitant]
     Active Substance: TIZANIDINE

REACTIONS (1)
  - Ill-defined disorder [Unknown]
